FAERS Safety Report 17667512 (Version 1)
Quarter: 2020Q2

REPORT INFORMATION
  Report Type: Spontaneous
  Country: NL (occurrence: NL)
  Receive Date: 20200414
  Receipt Date: 20200414
  Transmission Date: 20200713
  Serious: Yes (Hospitalization, Other)
  Sender: FDA-Public Use
  Company Number: NL-MYLANLABS-2020M1037562

PATIENT
  Age: 61 Year
  Sex: Male

DRUGS (4)
  1. CISPLATIN. [Suspect]
     Active Substance: CISPLATIN
     Indication: METASTATIC GASTRIC CANCER
     Dosage: INFUUS, 1 MG/MG (MILLIGRAM PER MILLIGRAM)
     Dates: start: 20190919
  2. OXALIPLATIN. [Suspect]
     Active Substance: OXALIPLATIN
     Indication: METASTATIC GASTRIC CANCER
     Dosage: INFUUS, 1 MG/MG (MILLIGRAM PER MILLIGRAM)
     Dates: start: 20190919
  3. HERCEPTIN [Suspect]
     Active Substance: TRASTUZUMAB
     Indication: METASTATIC GASTRIC CANCER
     Dosage: UNK
     Dates: start: 20190919
  4. CAPECITABINE. [Suspect]
     Active Substance: CAPECITABINE
     Indication: METASTATIC GASTRIC CANCER
     Dosage: FILMOMHULDE TABLET, 500 MG (MILLIGRAM), 2 KEER PER DAG, 4
     Dates: start: 20190913

REACTIONS (1)
  - Toxic leukoencephalopathy [Unknown]

NARRATIVE: CASE EVENT DATE: 20191001
